FAERS Safety Report 6833380-8 (Version None)
Quarter: 2010Q3

REPORT INFORMATION
  Report Type: 
  Country: None (occurrence: None)
  Receive Date: 20100712
  Receipt Date: 20070320
  Transmission Date: 20110219
  Serious: No
  Sender: FDA-Public Use
  Company Number: US-PFIZER INC-2007022979

PATIENT
  Sex: Female
  Weight: 49.9 kg

DRUGS (7)
  1. CHANTIX [Suspect]
     Indication: SMOKING CESSATION THERAPY
     Dates: start: 20070101, end: 20070101
  2. PRINIVIL [Concomitant]
  3. EVISTA [Concomitant]
  4. VITAMINS [Concomitant]
  5. SPIRIVA [Concomitant]
  6. ADVAIR DISKUS 100/50 [Concomitant]
  7. FIORINAL [Concomitant]
     Indication: SINUS DISORDER

REACTIONS (2)
  - DRUG DOSE OMISSION [None]
  - VERTIGO [None]
